FAERS Safety Report 8461972-1 (Version None)
Quarter: 2012Q2

REPORT INFORMATION
  Report Type: 
  Country: None (occurrence: None)
  Receive Date: 20120625
  Receipt Date: 20120616
  Transmission Date: 20120825
  Serious: Yes (Hospitalization, Other)
  Sender: FDA-Public Use
  Company Number: US-BAYER-2011-099688

PATIENT
  Age: 20 Year
  Sex: Female

DRUGS (5)
  1. ACETAMINOPHEN AND HYDROCODONE BITARTRATE [Concomitant]
     Indication: BACK PAIN
     Dosage: 500 MG - 5 MG, Q 4HRS PRN
     Route: 048
     Dates: start: 20080830, end: 20090921
  2. YAZ [Suspect]
     Dosage: UNK
     Route: 048
     Dates: start: 20040101
  3. ZOFRAN [Concomitant]
  4. YASMIN [Suspect]
     Dosage: UNK
     Route: 048
     Dates: start: 20040101
  5. PREVACID [Concomitant]
     Dosage: 30 MG, ONCE Q DAY
     Route: 048
     Dates: start: 20080830

REACTIONS (9)
  - ACNE [None]
  - INJURY [None]
  - PSYCHOLOGICAL TRAUMA [None]
  - EMOTIONAL DISTRESS [None]
  - WEIGHT INCREASED [None]
  - CHOLELITHIASIS [None]
  - ANXIETY [None]
  - GALLBLADDER DISORDER [None]
  - PAIN [None]
